FAERS Safety Report 24429198 (Version 1)
Quarter: 2024Q4

REPORT INFORMATION
  Report Type: Spontaneous
  Country: US (occurrence: US)
  Receive Date: 20241011
  Receipt Date: 20241011
  Transmission Date: 20250115
  Serious: No
  Sender: MERCK
  Company Number: US-009507513-2409USA005383

PATIENT
  Sex: Female

DRUGS (5)
  1. BELSOMRA [Suspect]
     Active Substance: SUVOREXANT
     Indication: Insomnia
     Dosage: 1 DOSAGE FORM, NIGHTLY (QD)
     Route: 048
     Dates: end: 20240908
  2. BELSOMRA [Suspect]
     Active Substance: SUVOREXANT
     Dosage: 1 DOSAGE FORM, NIGHTLY (QD)
     Route: 048
     Dates: start: 20240912
  3. LEVOTHYROXINE [Concomitant]
     Active Substance: LEVOTHYROXINE
  4. RAMIPRIL [Concomitant]
     Active Substance: RAMIPRIL
  5. MIRTAZAPINE [Concomitant]
     Active Substance: MIRTAZAPINE

REACTIONS (7)
  - Insomnia [Recovered/Resolved]
  - Nausea [Unknown]
  - Fatigue [Unknown]
  - Feeling abnormal [Unknown]
  - Product dose omission issue [Unknown]
  - Product use issue [Unknown]
  - Product availability issue [Unknown]

NARRATIVE: CASE EVENT DATE: 20240101
